FAERS Safety Report 16190927 (Version 1)
Quarter: 2019Q2

REPORT INFORMATION
  Report Type: Spontaneous
  Country: CN (occurrence: CN)
  Receive Date: 20190412
  Receipt Date: 20190412
  Transmission Date: 20190711
  Serious: Yes (Other)
  Sender: FDA-Public Use
  Company Number: PHHY2019CN080455

PATIENT
  Age: 26 Year
  Sex: Female

DRUGS (1)
  1. NILOTINIB [Suspect]
     Active Substance: NILOTINIB
     Indication: CHRONIC MYELOID LEUKAEMIA
     Dosage: 200 MG, BID
     Route: 065
     Dates: start: 20151021

REACTIONS (4)
  - Intestinal perforation [Recovered/Resolved]
  - Gastrointestinal necrosis [Recovered/Resolved]
  - Nausea [Unknown]
  - Constipation [Unknown]
